FAERS Safety Report 8849779 (Version 3)
Quarter: 2014Q1

REPORT INFORMATION
  Report Type: Spontaneous
  Country: US (occurrence: None)
  Receive Date: 20120426
  Receipt Date: 20130107
  Transmission Date: 20141002
  Serious: Yes (Other)
  Sender: FDA-Public Use
  Company Number: PHEH2011US011981

PATIENT
  Age: 40 Year
  Sex: Male
  Weight: 73.9 kg

DRUGS (6)
  1. GILENYA (FTY) CAPSULE, 0.5 MG [Suspect]
     Indication: RELAPSING-REMITTING MULTIPLE SCLEROSIS
     Route: 048
     Dates: start: 20110613, end: 20111219
  2. NEURONTIN (GABAPENTIN) [Concomitant]
  3. FAMPRIDINE (FAMPRIDINE) [Concomitant]
  4. WELLBUTRIN (BUPROPION HYDROCHLORIDE) [Concomitant]
  5. PROVIGIL (MODAFINIL) [Concomitant]
  6. IBUPROFEN (IBUPROFEN) [Concomitant]

REACTIONS (11)
  - Lymphocyte count decreased [None]
  - Blood creatinine decreased [None]
  - Mean cell haemoglobin increased [None]
  - Decreased appetite [None]
  - Weight decreased [None]
  - White blood cell count decreased [None]
  - Neutrophil count decreased [None]
  - Leukopenia [None]
  - Fatigue [None]
  - Hepatic enzyme increased [None]
  - Inappropriate schedule of drug administration [None]
